FAERS Safety Report 4855755-9 (Version None)
Quarter: 2005Q4

REPORT INFORMATION
  Report Type: 
  Country: None (occurrence: None)
  Receive Date: 20051215
  Receipt Date: 20051215
  Transmission Date: 20060501
  Serious: Yes (Hospitalization)
  Sender: FDA-Public Use
  Company Number: None

PATIENT
  Age: 61 Year
  Sex: Female
  Weight: 84.369 kg

DRUGS (7)
  1. TAXOTERE [Suspect]
     Indication: BREAST CANCER METASTATIC
     Dosage: 139 MG Q 3 WK IV
     Route: 042
     Dates: start: 20051116
  2. BEVACIZUMAB 15 MG/KG - GENENTECH [Suspect]
     Indication: BREAST CANCER METASTATIC
     Dosage: 1268 MG Q 3 WK IV
     Route: 042
     Dates: start: 20051116
  3. FENTANYL [Concomitant]
  4. HYDROCHLOROTHIAZIDE [Concomitant]
  5. LEVOXYL [Concomitant]
  6. VICODIN [Concomitant]
  7. MILK OF MAGNESIA TAB [Concomitant]

REACTIONS (9)
  - CHEST PAIN [None]
  - CONSTIPATION [None]
  - DIZZINESS [None]
  - DYSPNOEA [None]
  - HYPERHIDROSIS [None]
  - HYPERMAGNESAEMIA [None]
  - HYPOAESTHESIA [None]
  - HYPOKALAEMIA [None]
  - NAUSEA [None]
